FAERS Safety Report 24437960 (Version 1)
Quarter: 2024Q4

REPORT INFORMATION
  Report Type: Spontaneous
  Country: CN (occurrence: CN)
  Receive Date: 20241015
  Receipt Date: 20241015
  Transmission Date: 20250114
  Serious: Yes (Other)
  Sender: PFIZER
  Company Number: CN-PFIZER INC-PV202400131972

PATIENT
  Age: 28 Year
  Sex: Female
  Weight: 66 kg

DRUGS (1)
  1. CYTARABINE [Suspect]
     Active Substance: CYTARABINE
     Indication: Chemotherapy
     Dosage: 5 G, 2X/DAY
     Route: 041
     Dates: start: 20240911, end: 20240913

REACTIONS (8)
  - Granulocytopenia [Not Recovered/Not Resolved]
  - Platelet count decreased [Not Recovered/Not Resolved]
  - Pruritus [Recovering/Resolving]
  - Myelosuppression [Not Recovered/Not Resolved]
  - Epistaxis [Recovering/Resolving]
  - Pyrexia [Not Recovered/Not Resolved]
  - Discomfort [Unknown]
  - Nausea [Unknown]

NARRATIVE: CASE EVENT DATE: 20240901
